FAERS Safety Report 5557719-9 (Version None)
Quarter: 2007Q4

REPORT INFORMATION
  Report Type: 
  Country: None (occurrence: None)
  Receive Date: 20071214
  Receipt Date: 20071205
  Transmission Date: 20080405
  Serious: No
  Sender: FDA-Public Use
  Company Number: CA-BAXTER-2007BH009696

PATIENT
  Sex: Male

DRUGS (1)
  1. ADVATE [Suspect]
     Indication: DRUG USE FOR UNKNOWN INDICATION
     Dosage: DOSE UNIT:UNKNOWN
     Route: 042

REACTIONS (1)
  - FACTOR VIII INHIBITION [None]
